FAERS Safety Report 4793483-9 (Version None)
Quarter: 2005Q4

REPORT INFORMATION
  Report Type: 
  Country: None (occurrence: None)
  Receive Date: 20051011
  Receipt Date: 20050802
  Transmission Date: 20060501
  Serious: No
  Sender: FDA-Public Use
  Company Number: US-BRISTOL-MYERS SQUIBB COMPANY-13059480

PATIENT
  Age: 74 Year
  Sex: Female
  Weight: 109 kg

DRUGS (5)
  1. GLUCOPHAGE XR [Suspect]
     Indication: DIABETES MELLITUS NON-INSULIN-DEPENDENT
     Route: 048
  2. INSULIN [Concomitant]
  3. IMDUR [Concomitant]
  4. NORVASC [Concomitant]
  5. TOPROL-XL [Concomitant]

REACTIONS (1)
  - WEIGHT INCREASED [None]
